FAERS Safety Report 5715378-6 (Version None)
Quarter: 2008Q2

REPORT INFORMATION
  Report Type: 
  Country: None (occurrence: None)
  Receive Date: 20080423
  Receipt Date: 20080415
  Transmission Date: 20081010
  Serious: Yes (Hospitalization)
  Sender: FDA-Public Use
  Company Number: DE-PFIZER INC-2008033222

PATIENT
  Sex: Male

DRUGS (3)
  1. ZOLOFT [Suspect]
     Indication: DEPRESSION
     Dosage: DAILY DOSE:200MG
     Route: 048
  2. VENLAFAXINE HCL [Interacting]
     Indication: DEPRESSION
     Dosage: DAILY DOSE:75MG
  3. MEGLUCON [Concomitant]
     Indication: DIABETES MELLITUS

REACTIONS (2)
  - CONFUSIONAL STATE [None]
  - DRUG INTERACTION [None]
